FAERS Safety Report 22921628 (Version 4)
Quarter: 2024Q3

REPORT INFORMATION
  Report Type: Report from Study
  Country: US (occurrence: US)
  Receive Date: 20230908
  Receipt Date: 20240814
  Transmission Date: 20241017
  Serious: No
  Sender: NOVARTIS
  Company Number: US-SANDOZ-SDZ2023US024585

PATIENT
  Sex: Male

DRUGS (1)
  1. ENTRESTO [Suspect]
     Active Substance: SACUBITRIL\VALSARTAN
     Indication: Product used for unknown indication
     Dosage: 24/26 MG, BID
     Route: 048

REACTIONS (6)
  - Weight decreased [Unknown]
  - Respiratory tract congestion [Unknown]
  - Increased need for sleep [Unknown]
  - Fatigue [Unknown]
  - Asthenia [Unknown]
  - Throat clearing [Unknown]
